FAERS Safety Report 21916500 (Version 1)
Quarter: 2023Q1

REPORT INFORMATION
  Report Type: Spontaneous
  Country: CN (occurrence: CN)
  Receive Date: 20230126
  Receipt Date: 20230126
  Transmission Date: 20230418
  Serious: Yes (Other)
  Sender: FDA-Public Use
  Company Number: CN-009507513-2301CHN007914

PATIENT
  Sex: Male
  Weight: 70 kg

DRUGS (2)
  1. INVANZ [Suspect]
     Active Substance: ERTAPENEM SODIUM
     Indication: Intestinal obstruction
     Dosage: 1 G, QD, IV DRIP
     Route: 041
     Dates: start: 20230106, end: 20230112
  2. SODIUM CHLORIDE [Concomitant]
     Active Substance: SODIUM CHLORIDE
     Indication: Intestinal obstruction
     Dosage: 100 ML QD, IV DRIP
     Route: 041
     Dates: start: 20230106, end: 20230112

REACTIONS (5)
  - Intestinal obstruction [Unknown]
  - Drug-induced liver injury [Unknown]
  - Alanine aminotransferase increased [Recovering/Resolving]
  - Blood bilirubin increased [Recovering/Resolving]
  - Product use in unapproved indication [Unknown]

NARRATIVE: CASE EVENT DATE: 20230101
